FAERS Safety Report 22677788 (Version 4)
Quarter: 2024Q2

REPORT INFORMATION
  Report Type: Spontaneous
  Country: DO (occurrence: DO)
  Receive Date: 20230706
  Receipt Date: 20240530
  Transmission Date: 20240716
  Serious: No
  Sender: FDA-Public Use
  Company Number: DO-PFIZER INC-PV202300113327

PATIENT
  Age: 11 Year

DRUGS (2)
  1. GENOTROPIN [Suspect]
     Active Substance: SOMATROPIN
     Dosage: 1 MG, 1X/DAY
  2. GENOTROPIN [Suspect]
     Active Substance: SOMATROPIN
     Dosage: 1.2 MG EVERY NIGHT

REACTIONS (3)
  - Poor quality device used [Unknown]
  - Device mechanical issue [Unknown]
  - Expired device used [Unknown]

NARRATIVE: CASE EVENT DATE: 20230601
